FAERS Safety Report 17909589 (Version 1)
Quarter: 2020Q2

REPORT INFORMATION
  Report Type: Spontaneous
  Country: US (occurrence: US)
  Receive Date: 20200618
  Receipt Date: 20200618
  Transmission Date: 20200714
  Serious: Yes (Hospitalization)
  Sender: FDA-Public Use
  Company Number: US-ROCHE-2624427

PATIENT
  Age: 42 Year
  Sex: Male
  Weight: 98.3 kg

DRUGS (38)
  1. RITUXAN [Suspect]
     Active Substance: RITUXIMAB
     Indication: B-CELL LYMPHOMA
     Dosage: ONCE
     Route: 042
     Dates: start: 20200318, end: 20200318
  2. ATARAX [Concomitant]
     Active Substance: HYDROXYZINE HYDROCHLORIDE
  3. ONDANSETRON [Concomitant]
     Active Substance: ONDANSETRON
  4. IFOSFAMIDE. [Concomitant]
     Active Substance: IFOSFAMIDE
     Dosage: ONCE
     Route: 042
  5. ETOPOSIDE. [Concomitant]
     Active Substance: ETOPOSIDE
     Dosage: 876 MG, 4 IN 1 D
     Route: 042
  6. CAFFEINE. [Concomitant]
     Active Substance: CAFFEINE
  7. ZARZIO [Concomitant]
     Active Substance: FILGRASTIM
  8. PIPERACILLIN. [Concomitant]
     Active Substance: PIPERACILLIN SODIUM
  9. CARBOPLATIN. [Concomitant]
     Active Substance: CARBOPLATIN
     Dosage: ONCE
     Route: 042
  10. AMITRIPTYLINE [Concomitant]
     Active Substance: AMITRIPTYLINE
  11. RED BLOOD CELLS, CONCENTRATED [Concomitant]
     Active Substance: HUMAN RED BLOOD CELL
  12. TARGINIQ ER [Concomitant]
     Active Substance: NALOXONE HYDROCHLORIDE\OXYCODONE HYDROCHLORIDE
  13. IFOSFAMIDE. [Concomitant]
     Active Substance: IFOSFAMIDE
     Dosage: ONCE
     Route: 042
  14. MERONEM [Concomitant]
     Active Substance: MEROPENEM
  15. MOVICOL [Concomitant]
     Active Substance: POLYETHYLENE GLYCOL 3350\POTASSIUM CHLORIDE\SODIUM BICARBONATE\SODIUM CHLORIDE
  16. OXYCONTIN [Concomitant]
     Active Substance: OXYCODONE HYDROCHLORIDE
  17. PARACETAMOL [Concomitant]
     Active Substance: ACETAMINOPHEN
  18. XYLOCAINE [Concomitant]
     Active Substance: LIDOCAINE HYDROCHLORIDE
  19. SODIUM BICARBONATE. [Concomitant]
     Active Substance: SODIUM BICARBONATE
  20. ETOPOSIDE. [Concomitant]
     Active Substance: ETOPOSIDE
     Route: 042
  21. RITUXAN [Suspect]
     Active Substance: RITUXIMAB
     Dosage: ONCE
     Route: 042
  22. DELTISON [PREDNISONE] [Concomitant]
  23. FURIX [FUROSEMIDE] [Concomitant]
     Active Substance: FUROSEMIDE
  24. PLATELETS [Concomitant]
     Active Substance: HUMAN PLATELET, ALLOGENIC
  25. CARBOPLATIN. [Concomitant]
     Active Substance: CARBOPLATIN
     Dosage: ONCE
     Route: 042
  26. FRAGMIN [Concomitant]
     Active Substance: DALTEPARIN SODIUM
  27. BACTRIM [Concomitant]
     Active Substance: SULFAMETHOXAZOLE\TRIMETHOPRIM
  28. METOCLOPRAMIDE. [Concomitant]
     Active Substance: METOCLOPRAMIDE
  29. ORUDIS [Concomitant]
     Active Substance: KETOPROFEN
  30. OXAZEPAM. [Concomitant]
     Active Substance: OXAZEPAM
  31. SCHERIPROCT NEO [Concomitant]
  32. OMEPRAZOLE. [Concomitant]
     Active Substance: OMEPRAZOLE
  33. VALTREX [Concomitant]
     Active Substance: VALACYCLOVIR HYDROCHLORIDE
  34. ZOPICLONE [Concomitant]
     Active Substance: ZOPICLONE
  35. FLUCONAZOLE. [Concomitant]
     Active Substance: FLUCONAZOLE
  36. OXYNORM [Concomitant]
     Active Substance: OXYCODONE HYDROCHLORIDE
  37. RECTOGESIC [GLYCERYL TRINITRATE] [Concomitant]
     Active Substance: NITROGLYCERIN
  38. PHENOXYMETHYLPENICILLIN [Concomitant]
     Active Substance: PENICILLIN V

REACTIONS (2)
  - Femur fracture [Recovered/Resolved with Sequelae]
  - Pyrexia [Recovered/Resolved]

NARRATIVE: CASE EVENT DATE: 20200325
